FAERS Safety Report 25457168 (Version 1)
Quarter: 2025Q2

REPORT INFORMATION
  Report Type: Spontaneous
  Country: US (occurrence: US)
  Receive Date: 20250619
  Receipt Date: 20250619
  Transmission Date: 20250716
  Serious: Yes (Hospitalization)
  Sender: SANOFI AVENTIS
  Company Number: US-SA-2025SA174183

PATIENT
  Age: 4 Year
  Sex: Female
  Weight: 25 kg

DRUGS (20)
  1. XENPOZYME [Suspect]
     Active Substance: OLIPUDASE ALFA-RPCP
     Indication: Niemann-Pick disease
     Dosage: 21 MG, QOW
  2. SODIUM CHLORIDE [Concomitant]
     Active Substance: SODIUM CHLORIDE
  3. SODIUM CHLORIDE [Concomitant]
     Active Substance: SODIUM CHLORIDE
  4. STERILE WATER [Concomitant]
     Active Substance: WATER
  5. EPINEPHRINE [Concomitant]
     Active Substance: EPINEPHRINE
  6. LACOSAMIDE [Concomitant]
     Active Substance: LACOSAMIDE
  7. ONDANSETRON [Concomitant]
     Active Substance: ONDANSETRON
  8. LIDOCAINE [Concomitant]
     Active Substance: LIDOCAINE
  9. ACETAMINOPHEN [Concomitant]
     Active Substance: ACETAMINOPHEN
  10. DIPHENHYDRAMINE [Concomitant]
     Active Substance: DIPHENHYDRAMINE
  11. CETIRIZINE HYDROCHLORIDE [Concomitant]
     Active Substance: CETIRIZINE HYDROCHLORIDE
  12. OXYGEN [Concomitant]
     Active Substance: OXYGEN
  13. LACTULOSE [Concomitant]
     Active Substance: LACTULOSE
  14. CLONIDINE [Concomitant]
     Active Substance: CLONIDINE
  15. MELATONIN [Concomitant]
     Active Substance: MELATONIN
  16. PREGABALIN [Concomitant]
     Active Substance: PREGABALIN
  17. VITAMIN D3 [Concomitant]
     Active Substance: CHOLECALCIFEROL
  18. METRONIDAZOLE [Concomitant]
     Active Substance: METRONIDAZOLE
  19. FAMOTIDINE [Concomitant]
     Active Substance: FAMOTIDINE
  20. METHADONE [Concomitant]
     Active Substance: METHADONE HYDROCHLORIDE

REACTIONS (1)
  - Dyspnoea [Recovering/Resolving]
